FAERS Safety Report 14911682 (Version 1)
Quarter: 2018Q2

REPORT INFORMATION
  Report Type: Spontaneous
  Country: IT (occurrence: IT)
  Receive Date: 20180518
  Receipt Date: 20180518
  Transmission Date: 20180711
  Serious: Yes (Other)
  Sender: FDA-Public Use
  Company Number: IT-AMGEN-ITASP2018064547

PATIENT
  Age: 42 Year
  Sex: Female

DRUGS (10)
  1. DIBASE [Concomitant]
     Active Substance: CHOLECALCIFEROL
     Dosage: 20 GTT, UNK
  2. CYCLOPHOSPHAMIDE. [Concomitant]
     Active Substance: CYCLOPHOSPHAMIDE
     Indication: BREAST CANCER
     Route: 048
  3. BONDRONAT [Suspect]
     Active Substance: IBANDRONIC ACID
     Indication: BREAST CANCER METASTATIC
     Route: 048
     Dates: start: 20141016, end: 20160606
  4. FULVESTRANT. [Concomitant]
     Active Substance: FULVESTRANT
  5. XGEVA [Suspect]
     Active Substance: DENOSUMAB
     Indication: BREAST CANCER METASTATIC
     Dosage: 120 MG, UNK
     Route: 058
  6. HERCEPTIN [Concomitant]
     Active Substance: TRASTUZUMAB
     Indication: BREAST CANCER METASTATIC
  7. DECAPEPTYL [Concomitant]
     Active Substance: TRIPTORELIN
     Route: 030
  8. LETROZOLE. [Concomitant]
     Active Substance: LETROZOLE
  9. METHOTREXATE. [Concomitant]
     Active Substance: METHOTREXATE
     Indication: BREAST CANCER METASTATIC
     Route: 048
  10. AXAGON [Concomitant]
     Active Substance: ESOMEPRAZOLE
     Route: 048

REACTIONS (3)
  - Fistula [Not Recovered/Not Resolved]
  - Gingivitis [Not Recovered/Not Resolved]
  - Osteonecrosis of jaw [Not Recovered/Not Resolved]

NARRATIVE: CASE EVENT DATE: 20180101
